FAERS Safety Report 12353921 (Version 1)
Quarter: 2016Q2

REPORT INFORMATION
  Report Type: Spontaneous
  Country: US (occurrence: None)
  Receive Date: 20160510
  Receipt Date: 20160510
  Transmission Date: 20160815
  Serious: No
  Sender: FDA-Public Use
  Company Number: None

PATIENT
  Age: 39 Year
  Sex: Female
  Weight: 43.09 kg

DRUGS (1)
  1. GAMUNEX-C [Suspect]
     Active Substance: HUMAN IMMUNOGLOBULIN G
     Indication: POLYMYOSITIS
     Dosage: 36 G DAILY FOR 2 DAYS INTRAVENOUS DRIP
     Route: 041
     Dates: start: 20160408, end: 20160501

REACTIONS (3)
  - Tachycardia [None]
  - Nausea [None]
  - Infusion related reaction [None]

NARRATIVE: CASE EVENT DATE: 20160505
